FAERS Safety Report 20878446 (Version 2)
Quarter: 2022Q3

REPORT INFORMATION
  Report Type: Report from Study
  Country: US (occurrence: US)
  Receive Date: 20220526
  Receipt Date: 20220627
  Transmission Date: 20221026
  Serious: No
  Sender: FDA-Public Use
  Company Number: US-NOVARTISTESTPH-NVSC2022US121588

PATIENT
  Sex: Male

DRUGS (1)
  1. COSENTYX [Suspect]
     Active Substance: SECUKINUMAB
     Indication: Psoriasis
     Dosage: 300 MG, QMO (EVERY FOUR WEEKS)
     Route: 058

REACTIONS (6)
  - Joint stiffness [Recovering/Resolving]
  - Accident at work [Unknown]
  - Fall [Unknown]
  - Concussion [Unknown]
  - Skin lesion [Recovering/Resolving]
  - Drug ineffective [Unknown]
